FAERS Safety Report 15813209 (Version 2)
Quarter: 2019Q1

REPORT INFORMATION
  Report Type: Spontaneous
  Country: AT (occurrence: AT)
  Receive Date: 20190111
  Receipt Date: 20190211
  Transmission Date: 20190417
  Serious: Yes (Other)
  Sender: FDA-Public Use
  Company Number: AT-INDIVIOR INC.-INDV-116886-2019

PATIENT
  Age: 81 Year
  Sex: Male

DRUGS (38)
  1. SUBOXONE [Suspect]
     Active Substance: BUPRENORPHINE HYDROCHLORIDE\NALOXONE HYDROCHLORIDE
     Dosage: 8/2 MG 1 TIME/DAY
     Route: 065
     Dates: start: 2017
  2. FENTANYL. [Suspect]
     Active Substance: FENTANYL
     Indication: PAIN
     Dosage: 100 MCG, UNK
     Route: 062
     Dates: start: 201612
  3. OXYCODONE HYDROCHLORIDE. [Suspect]
     Active Substance: OXYCODONE HYDROCHLORIDE
     Dosage: 20 MG, UNK
     Route: 065
     Dates: start: 2016
  4. DRONABINOL. [Suspect]
     Active Substance: DRONABINOL
     Indication: PAIN
     Dosage: UNK
     Route: 065
     Dates: start: 201502
  5. METAMIZOL                          /06276702/ [Concomitant]
     Active Substance: METAMIZOLE
     Dosage: 500 MG, UP TO 4 TIMES DAILY
     Route: 065
     Dates: start: 201612
  6. LYRICA [Concomitant]
     Active Substance: PREGABALIN
     Indication: PRODUCT USED FOR UNKNOWN INDICATION
     Dosage: UNK
     Route: 065
  7. NALOXONE [Concomitant]
     Active Substance: NALOXONE
     Indication: PRODUCT USED FOR UNKNOWN INDICATION
     Dosage: 2 MG, ONCE IN THE MORNING
     Route: 065
     Dates: start: 201612
  8. OXYCODONE HYDROCHLORIDE. [Suspect]
     Active Substance: OXYCODONE HYDROCHLORIDE
     Indication: PAIN
     Dosage: 10 MG, Q6H
     Route: 065
     Dates: start: 2014
  9. ALPRAZOLAM. [Concomitant]
     Active Substance: ALPRAZOLAM
     Indication: PRODUCT USED FOR UNKNOWN INDICATION
     Dosage: 0.5 MG, 1/2-1/2-1/2 (HALF THREE TIMES A DAY)
     Route: 065
     Dates: start: 201612
  10. SUBOXONE [Suspect]
     Active Substance: BUPRENORPHINE HYDROCHLORIDE\NALOXONE HYDROCHLORIDE
     Indication: PAIN
     Dosage: 8/2 MG PLUS 2/0.5 MG, Q12H
     Route: 065
     Dates: start: 2016
  11. TEMGESIC [Suspect]
     Active Substance: BUPRENORPHINE HYDROCHLORIDE
     Indication: PAIN
     Dosage: 0.4 MG, UNK
     Route: 065
     Dates: start: 2016
  12. NEURONTIN [Suspect]
     Active Substance: GABAPENTIN
     Indication: PRODUCT USED FOR UNKNOWN INDICATION
     Dosage: 300 MG, 3 TIMES
     Route: 065
  13. OXYCODONE HYDROCHLORIDE. [Suspect]
     Active Substance: OXYCODONE HYDROCHLORIDE
     Dosage: 80 MG, Q8H
     Route: 065
     Dates: start: 2015
  14. OXYCODONE HYDROCHLORIDE. [Suspect]
     Active Substance: OXYCODONE HYDROCHLORIDE
     Dosage: 80 MG, Q8H
     Route: 065
     Dates: start: 2016
  15. OXYCODONE HYDROCHLORIDE. [Suspect]
     Active Substance: OXYCODONE HYDROCHLORIDE
     Dosage: UNK
     Route: 065
     Dates: start: 2018
  16. MORPHINE [Suspect]
     Active Substance: MORPHINE
     Indication: PRODUCT USED FOR UNKNOWN INDICATION
     Dosage: 8 ML, 4 TIMES
     Route: 065
  17. METAMIZOL                          /06276702/ [Concomitant]
     Active Substance: METAMIZOLE
     Indication: PRODUCT USED FOR UNKNOWN INDICATION
     Dosage: 20 DROP, UNK
     Route: 065
     Dates: start: 201409
  18. FENOTEROL HYDROBROMIDE W/IPRATROPIU/00616101/ [Concomitant]
     Indication: DYSPNOEA
     Dosage: DA 1-2 PRESSES
     Route: 065
     Dates: start: 201409
  19. FENOTEROL HYDROBROMIDE W/IPRATROPIU/00616101/ [Concomitant]
     Dosage: METERED-DOSE AEROSOL UP TO 3 TIMES 2 PRESSES
     Route: 065
     Dates: start: 201612
  20. PANTOPRAZOLE [Concomitant]
     Active Substance: PANTOPRAZOLE
     Indication: PRODUCT USED FOR UNKNOWN INDICATION
     Dosage: 40 MG, UNK
     Route: 065
     Dates: start: 201409
  21. PROTHIPENDYL [Concomitant]
     Active Substance: PROTHIPENDYL
     Indication: SLEEP DISORDER
     Dosage: 80 MG, 1/2  TO 1 TO SLEEP
     Route: 065
     Dates: start: 201409
  22. SUBOXONE [Suspect]
     Active Substance: BUPRENORPHINE HYDROCHLORIDE\NALOXONE HYDROCHLORIDE
     Dosage: 2 MG/0.5 MG 4 TIMES/DAY
     Route: 065
     Dates: start: 2017
  23. OXYCODONE HYDROCHLORIDE. [Suspect]
     Active Substance: OXYCODONE HYDROCHLORIDE
     Dosage: 80 MG, UNK
     Route: 065
     Dates: start: 201612
  24. OXYCODONE HYDROCHLORIDE. [Suspect]
     Active Substance: OXYCODONE HYDROCHLORIDE
     Dosage: 80 MG, Q8H
     Route: 065
     Dates: start: 201709
  25. MIRTAZAPIN [Concomitant]
     Active Substance: MIRTAZAPINE
     Indication: EVIDENCE BASED TREATMENT
     Dosage: 30 MG, DAILY
     Route: 065
     Dates: start: 201409
  26. DULOXETINE. [Concomitant]
     Active Substance: DULOXETINE
     Indication: EVIDENCE BASED TREATMENT
     Dosage: 60 MG, ONCE IN THE MORNING AND ONCE IN THE AFTERNOON
     Route: 065
     Dates: start: 201612
  27. TIOTROPIUM [Concomitant]
     Active Substance: TIOTROPIUM
     Indication: PRODUCT USED FOR UNKNOWN INDICATION
     Dosage: 2.5 MCG, 2 PRESSES
     Route: 065
     Dates: start: 201409
  28. XYLONEURAL [Concomitant]
     Indication: SCAR
     Dosage: UNK
     Route: 065
  29. SALOFALK                           /00000301/ [Concomitant]
     Active Substance: MESALAMINE
     Indication: PRODUCT USED FOR UNKNOWN INDICATION
     Dosage: 3 TIMES ONE
     Route: 065
     Dates: start: 201409
  30. MIRTAZAPIN [Concomitant]
     Active Substance: MIRTAZAPINE
     Dosage: 30 MG, ONCE IN THE NIGHT
     Route: 065
     Dates: start: 201612
  31. FOSTER                             /00500401/ [Concomitant]
     Active Substance: PIROXICAM
     Indication: PRODUCT USED FOR UNKNOWN INDICATION
     Dosage: 2 TIMES 2 PRESSES
     Route: 065
     Dates: start: 201612
  32. SUBOXONE [Suspect]
     Active Substance: BUPRENORPHINE HYDROCHLORIDE\NALOXONE HYDROCHLORIDE
     Indication: PAIN
     Dosage: 8/2 MG PLUS 2/0.5 MG, Q12H
     Route: 065
     Dates: start: 2016
  33. BUPRENORPHINE TRANSDERMAL SYSTEM [Suspect]
     Active Substance: BUPRENORPHINE
     Indication: PAIN
     Dosage: 140 MCG, UNK
     Route: 062
     Dates: start: 2016
  34. OXYCODONE HYDROCHLORIDE. [Suspect]
     Active Substance: OXYCODONE HYDROCHLORIDE
     Dosage: 80 MG, Q8H
     Route: 065
     Dates: start: 201409
  35. OXYCODONE HYDROCHLORIDE. [Suspect]
     Active Substance: OXYCODONE HYDROCHLORIDE
     Dosage: 20 MG, Q6H
     Route: 065
     Dates: start: 2015
  36. DULOXETINE. [Concomitant]
     Active Substance: DULOXETINE
     Dosage: 30 UNK, DAILY
     Route: 065
     Dates: start: 201409
  37. PANTOPRAZOLE [Concomitant]
     Active Substance: PANTOPRAZOLE
     Dosage: 40 MG, ONE TIME IN THE MORNING
     Route: 065
     Dates: start: 201612
  38. MESALAZINE [Concomitant]
     Active Substance: MESALAMINE
     Indication: PRODUCT USED FOR UNKNOWN INDICATION
     Dosage: 2 G, ONCE IN MORNING
     Route: 065
     Dates: start: 201612

REACTIONS (9)
  - Drug ineffective [Recovered/Resolved]
  - Drug withdrawal syndrome [Unknown]
  - Suicidal ideation [Unknown]
  - Depressed mood [Unknown]
  - Vertigo [Unknown]
  - Inappropriate schedule of product administration [Unknown]
  - General physical health deterioration [Recovering/Resolving]
  - Weight decreased [Unknown]
  - Drug dependence [Unknown]

NARRATIVE: CASE EVENT DATE: 201409
